FAERS Safety Report 7560883-3 (Version None)
Quarter: 2011Q2

REPORT INFORMATION
  Report Type: 
  Country: None (occurrence: None)
  Receive Date: 20110621
  Receipt Date: 20101012
  Transmission Date: 20111010
  Serious: No
  Sender: FDA-Public Use
  Company Number: US-ASTRAZENECA-2010SE48293

PATIENT
  Age: 75 Year

DRUGS (2)
  1. ATACAND [Suspect]
     Indication: ATRIAL FIBRILLATION
     Route: 048
  2. ATACAND [Suspect]
     Indication: HYPERTENSION
     Route: 048

REACTIONS (1)
  - HAEMATURIA [None]
